FAERS Safety Report 18703824 (Version 34)
Quarter: 2025Q2

REPORT INFORMATION
  Report Type: Report from Study
  Country: DE (occurrence: DE)
  Receive Date: 20210105
  Receipt Date: 20250505
  Transmission Date: 20250717
  Serious: Yes (Hospitalization, Other)
  Sender: TAKEDA
  Company Number: DE-TAKEDA-DE202029369

PATIENT
  Age: 77 Year
  Sex: Male

DRUGS (30)
  1. VONICOG ALFA [Suspect]
     Active Substance: VONICOG ALFA
     Indication: Von Willebrand^s disease
     Dosage: 2600 INTERNATIONAL UNIT, 1/WEEK
     Dates: start: 20190907, end: 20210222
  2. VONICOG ALFA [Suspect]
     Active Substance: VONICOG ALFA
     Dosage: 2600 INTERNATIONAL UNIT, 1/WEEK
     Dates: end: 20210222
  3. VONICOG ALFA [Suspect]
     Active Substance: VONICOG ALFA
     Dosage: 2600 INTERNATIONAL UNIT, Q2WEEKS
     Dates: start: 20200907, end: 20210201
  4. VONICOG ALFA [Suspect]
     Active Substance: VONICOG ALFA
     Dosage: 1300 INTERNATIONAL UNIT, Q2WEEKS
  5. VONICOG ALFA [Suspect]
     Active Substance: VONICOG ALFA
     Dosage: 2600 INTERNATIONAL UNIT, 2/WEEK
  6. VONICOG ALFA [Suspect]
     Active Substance: VONICOG ALFA
     Dosage: 2600 INTERNATIONAL UNIT, 2/WEEK
  7. VONICOG ALFA [Suspect]
     Active Substance: VONICOG ALFA
     Dosage: 1300 INTERNATIONAL UNIT, 1/WEEK
  8. VONICOG ALFA [Suspect]
     Active Substance: VONICOG ALFA
     Dosage: 1300 INTERNATIONAL UNIT, 1/WEEK
  9. VONICOG ALFA [Suspect]
     Active Substance: VONICOG ALFA
     Dosage: 2600 INTERNATIONAL UNIT, 2/WEEK
  10. VONICOG ALFA [Suspect]
     Active Substance: VONICOG ALFA
     Dosage: 2600 INTERNATIONAL UNIT, 2/WEEK
  11. VONICOG ALFA [Suspect]
     Active Substance: VONICOG ALFA
     Dosage: 2600 INTERNATIONAL UNIT, Q2WEEKS
     Dates: start: 20201102, end: 20201102
  12. VONICOG ALFA [Suspect]
     Active Substance: VONICOG ALFA
     Dosage: 2600 INTERNATIONAL UNIT, 2/WEEK
     Dates: start: 20200907, end: 20210201
  13. VONICOG ALFA [Suspect]
     Active Substance: VONICOG ALFA
     Dosage: 2600 INTERNATIONAL UNIT, 1/WEEK
  14. VONICOG ALFA [Suspect]
     Active Substance: VONICOG ALFA
     Dosage: 2600 INTERNATIONAL UNIT, 2/WEEK
  15. VONICOG ALFA [Suspect]
     Active Substance: VONICOG ALFA
     Dosage: 2600 INTERNATIONAL UNIT, 2/WEEK
  16. VONICOG ALFA [Suspect]
     Active Substance: VONICOG ALFA
     Dosage: 2600 INTERNATIONAL UNIT, 2/WEEK
  17. VONICOG ALFA [Suspect]
     Active Substance: VONICOG ALFA
     Dosage: 2600 INTERNATIONAL UNIT, Q2WEEKS
     Dates: end: 20201102
  18. VONICOG ALFA [Suspect]
     Active Substance: VONICOG ALFA
     Dosage: 2600 INTERNATIONAL UNIT, 2/WEEK
     Dates: start: 20220201
  19. VONICOG ALFA [Suspect]
     Active Substance: VONICOG ALFA
     Dosage: 2600 INTERNATIONAL UNIT, 2/WEEK
     Dates: start: 20230116
  20. VONICOG ALFA [Suspect]
     Active Substance: VONICOG ALFA
     Dosage: 2600 INTERNATIONAL UNIT, 2/WEEK
     Dates: start: 20230206
  21. VONICOG ALFA [Suspect]
     Active Substance: VONICOG ALFA
     Dosage: 2600 INTERNATIONAL UNIT, 2/WEEK
     Dates: start: 20230306
  22. VONICOG ALFA [Suspect]
     Active Substance: VONICOG ALFA
     Dosage: 2600 INTERNATIONAL UNIT, 2/WEEK
     Dates: start: 20230327
  23. VONICOG ALFA [Suspect]
     Active Substance: VONICOG ALFA
     Dosage: 2600 INTERNATIONAL UNIT, 2/WEEK
  24. VONICOG ALFA [Suspect]
     Active Substance: VONICOG ALFA
     Dosage: 1300 INTERNATIONAL UNIT, QD
  25. VONICOG ALFA [Suspect]
     Active Substance: VONICOG ALFA
     Dosage: 2600 INTERNATIONAL UNIT, 2/WEEK
  26. VONICOG ALFA [Suspect]
     Active Substance: VONICOG ALFA
     Dosage: 2600 INTERNATIONAL UNIT, 2/WEEK
  27. VONICOG ALFA [Suspect]
     Active Substance: VONICOG ALFA
     Dosage: 2600 INTERNATIONAL UNIT, 2/WEEK
  28. VONICOG ALFA [Suspect]
     Active Substance: VONICOG ALFA
     Dosage: 2600 INTERNATIONAL UNIT, 3/WEEK
  29. VONICOG ALFA [Suspect]
     Active Substance: VONICOG ALFA
  30. VONICOG ALFA [Suspect]
     Active Substance: VONICOG ALFA

REACTIONS (28)
  - Haematoma [Not Recovered/Not Resolved]
  - Cataract [Recovered/Resolved]
  - Eye haemorrhage [Recovered/Resolved]
  - Melaena [Recovered/Resolved]
  - Haemoglobin decreased [Recovered/Resolved]
  - Gastrointestinal haemorrhage [Recovered/Resolved]
  - Syncope [Not Recovered/Not Resolved]
  - Haematochezia [Recovered/Resolved]
  - Intestinal haemorrhage [Recovered/Resolved]
  - Gastric haemorrhage [Recovered/Resolved]
  - Polyp [Recovered/Resolved]
  - General physical health deterioration [Not Recovered/Not Resolved]
  - Fall [Not Recovered/Not Resolved]
  - Pallor [Not Recovered/Not Resolved]
  - Gastrointestinal angiodysplasia [Recovered/Resolved]
  - Abdominal pain [Recovered/Resolved]
  - Asthenia [Recovered/Resolved]
  - Abscess limb [Recovered/Resolved]
  - Off label use [Unknown]
  - Product solubility abnormal [Unknown]
  - Fatigue [Recovered/Resolved]
  - Blood iron decreased [Recovered/Resolved]
  - Listless [Recovered/Resolved]
  - COVID-19 [Unknown]
  - Skin laceration [Unknown]
  - Road traffic accident [Unknown]
  - Nausea [Recovered/Resolved]
  - Vomiting [Recovered/Resolved]

NARRATIVE: CASE EVENT DATE: 20200907
